FAERS Safety Report 9838787 (Version 1)
Quarter: 2014Q1

REPORT INFORMATION
  Report Type: Spontaneous
  Country: US (occurrence: US)
  Receive Date: 20140123
  Receipt Date: 20140123
  Transmission Date: 20141002
  Serious: No
  Sender: FDA-Public Use
  Company Number: US-PFIZER INC-2014017290

PATIENT
  Sex: Female

DRUGS (2)
  1. ADVIL [Suspect]
     Dosage: UNK
     Route: 048
  2. ADVIL [Suspect]
     Dosage: 400MG (TWO 200MG TABLETS), UNK
     Route: 048
     Dates: start: 20140118

REACTIONS (2)
  - Altered visual depth perception [Not Recovered/Not Resolved]
  - Visual impairment [Not Recovered/Not Resolved]
